FAERS Safety Report 8533759-2 (Version None)
Quarter: 2012Q3

REPORT INFORMATION
  Report Type: 
  Country: None (occurrence: None)
  Receive Date: 20120724
  Receipt Date: 20120716
  Transmission Date: 20120928
  Serious: Yes (Death, Life-Threatening, Other)
  Sender: FDA-Public Use
  Company Number: US-B.I. PHARMACEUTICALS,INC./RIDGEFIELD-2012-EU-03627GD

PATIENT
  Age: 77 Year
  Sex: Female
  Weight: 55 kg

DRUGS (3)
  1. DABIGATRAN [Suspect]
     Indication: CEREBROVASCULAR ACCIDENT PROPHYLAXIS
     Dosage: 300 MG
     Route: 048
     Dates: start: 20110517, end: 20110520
  2. ASPIRIN [Suspect]
     Dosage: 81 MG
  3. DABIGATRAN [Suspect]
     Indication: ATRIAL FIBRILLATION

REACTIONS (13)
  - SHOCK [None]
  - COAGULOPATHY [None]
  - HAEMOGLOBIN DECREASED [None]
  - ACUTE RESPIRATORY FAILURE [None]
  - RESPIRATORY FAILURE [None]
  - HAEMATOCRIT DECREASED [None]
  - PERICARDIAL HAEMORRHAGE [None]
  - PERICARDIAL EFFUSION [None]
  - CARDIAC TAMPONADE [None]
  - RESPIRATORY DISTRESS [None]
  - PLEURAL EFFUSION [None]
  - RENAL FAILURE ACUTE [None]
  - ABDOMINAL PAIN [None]
